FAERS Safety Report 18901737 (Version 2)
Quarter: 2021Q1

REPORT INFORMATION
  Report Type: Spontaneous
  Country: CN (occurrence: CN)
  Receive Date: 20210217
  Receipt Date: 20210320
  Transmission Date: 20210420
  Serious: Yes (Life-Threatening, Hospitalization, Other)
  Sender: FDA-Public Use
  Company Number: CN-ACCORD-217371

PATIENT
  Age: 68 Year
  Sex: Female

DRUGS (12)
  1. FUROSEMIDE. [Concomitant]
     Active Substance: FUROSEMIDE
     Dosage: 20MG BID PO, DURATION OF USE: 9/11?9/15,9/20?9/30, 10/1?10/16
     Route: 048
  2. POTASSIUM CHLORIDE. [Concomitant]
     Active Substance: POTASSIUM CHLORIDE
     Dosage: 1 G BID PO
     Route: 048
  3. NITROGLYCERIN. [Concomitant]
     Active Substance: NITROGLYCERIN
     Dosage: DURATION OF USE: 9/15?9/22
  4. WARFARIN [Concomitant]
     Active Substance: WARFARIN
     Indication: VENOUS THROMBOSIS
     Dosage: 0.625MG QN PO, 2 YEARS AGO, DURATION OF USE: 9/20?10/16
     Route: 048
  5. TRAMADOL. [Concomitant]
     Active Substance: TRAMADOL
     Dosage: DURATION OF USE: 9/20?9/30
  6. ACETYLSALICYLIC ACID [Concomitant]
     Active Substance: ASPIRIN
     Dosage: DURATION OF USE: 9/15?9/30
  7. CEFAZOLIN [Concomitant]
     Active Substance: CEFAZOLIN
     Dosage: DURATION OF USE:  9/14?9/15
  8. BARBITAL [Concomitant]
     Active Substance: BARBITAL
     Dosage: DURATION OF USE: 9/15?9/16
  9. CEFOPERAZONE/SULBACTAM [Concomitant]
     Active Substance: CEFOPERAZONE\SULBACTAM
     Dosage: DURATION OF USE: 9/16?9/30
  10. ATORVASTATIN/ATORVASTATIN CALCIUM [Suspect]
     Active Substance: ATORVASTATIN CALCIUM
     Indication: PRODUCT USED FOR UNKNOWN INDICATION
     Dosage: 20MG QN PO: DURATION OF USE: 9/20?10/16 (27 DAYS )
     Route: 048
  11. ISOSORBIDE. [Suspect]
     Active Substance: ISOSORBIDE
     Indication: PRODUCT USED FOR UNKNOWN INDICATION
     Dosage: DURATION OF USE: 9/20?10/16 (27 DAYS )
  12. DIGOXIN. [Concomitant]
     Active Substance: DIGOXIN
     Dosage: 0.125MG QD PO
     Route: 048

REACTIONS (1)
  - Toxic epidermal necrolysis [Recovered/Resolved]
